FAERS Safety Report 14893287 (Version 3)
Quarter: 2019Q1

REPORT INFORMATION
  Report Type: Report from Study
  Country: CA (occurrence: CA)
  Receive Date: 20180514
  Receipt Date: 20190124
  Transmission Date: 20190417
  Serious: Yes (Other)
  Sender: FDA-Public Use
  Company Number: CA-HLSUS-2018-CA-000631

PATIENT
  Age: 65 Year
  Sex: Female

DRUGS (3)
  1. DIVALPROEX [Concomitant]
     Active Substance: DIVALPROEX SODIUM
     Dosage: 750 MG
     Route: 048
     Dates: start: 2017
  2. ABILIFY [Concomitant]
     Active Substance: ARIPIPRAZOLE
     Dosage: 5 MG
     Route: 048
  3. CLOZARIL [Suspect]
     Active Substance: CLOZAPINE
     Dosage: 150 MG REDUCED TO 25 MG OVER SEVERAL MONTH
     Route: 048
     Dates: start: 19990401, end: 20180411

REACTIONS (26)
  - Oesophageal candidiasis [Unknown]
  - Rash [Unknown]
  - Constipation [Unknown]
  - Insomnia [Unknown]
  - Sciatica [Unknown]
  - Schizophrenia [Unknown]
  - Mean cell haemoglobin increased [Unknown]
  - Adverse drug reaction [Unknown]
  - Nausea [Unknown]
  - Drug ineffective [Unknown]
  - Abdominal pain upper [Unknown]
  - Haematocrit decreased [Unknown]
  - Weight increased [Recovered/Resolved]
  - Seasonal allergy [Unknown]
  - Decreased appetite [Unknown]
  - Weight decreased [Unknown]
  - Abdominal pain [Unknown]
  - Food intolerance [Unknown]
  - Abdominal distension [Unknown]
  - Haemoglobin decreased [Unknown]
  - Haemangioma of liver [Unknown]
  - Gastrointestinal disorder [Unknown]
  - Dysgeusia [Unknown]
  - Red blood cell count decreased [Unknown]
  - Restless legs syndrome [Unknown]
  - Hypersensitivity [Unknown]

NARRATIVE: CASE EVENT DATE: 201804
